FAERS Safety Report 8259531-9 (Version None)
Quarter: 2012Q2

REPORT INFORMATION
  Report Type: 
  Country: None (occurrence: None)
  Receive Date: 20120404
  Receipt Date: 20120328
  Transmission Date: 20120825
  Serious: Yes (Hospitalization, Disabling)
  Sender: FDA-Public Use
  Company Number: US-MERCK-1109USA01919

PATIENT
  Age: 46 Year
  Sex: Female
  Weight: 66 kg

DRUGS (7)
  1. FOSAMAX [Suspect]
     Route: 065
     Dates: start: 20080516, end: 20080901
  2. FOSAMAX [Suspect]
     Indication: OSTEOPENIA
     Route: 048
     Dates: start: 20020301, end: 20080101
  3. ALENDRONATE SODIUM [Suspect]
     Indication: OSTEOPENIA
     Route: 048
     Dates: start: 20081005, end: 20090401
  4. VITAMINS (UNSPECIFIED) [Concomitant]
     Route: 048
     Dates: start: 20000101
  5. FOSAMAX [Suspect]
     Indication: OSTEOPOROSIS
     Route: 048
     Dates: start: 20020301, end: 20080101
  6. ALENDRONATE SODIUM [Suspect]
     Route: 065
     Dates: start: 20080224, end: 20080301
  7. ALENDRONATE SODIUM [Suspect]
     Indication: OSTEOPOROSIS
     Route: 048
     Dates: start: 20081005, end: 20090401

REACTIONS (34)
  - INTERVERTEBRAL DISC DEGENERATION [None]
  - DEPRESSION [None]
  - CONTUSION [None]
  - CYST [None]
  - MYALGIA [None]
  - HYPERPARATHYROIDISM PRIMARY [None]
  - HYPERLIPIDAEMIA [None]
  - HYPOAESTHESIA [None]
  - DRUG HYPERSENSITIVITY [None]
  - ANAEMIA [None]
  - ANXIETY [None]
  - BREAST CALCIFICATIONS [None]
  - VITAMIN D DEFICIENCY [None]
  - JOINT CREPITATION [None]
  - TENSION HEADACHE [None]
  - POST-TRAUMATIC STRESS DISORDER [None]
  - FEMUR FRACTURE [None]
  - FALL [None]
  - NAUSEA [None]
  - PAIN IN EXTREMITY [None]
  - BONE DISORDER [None]
  - NECK PAIN [None]
  - DIABETES MELLITUS [None]
  - BRONCHITIS [None]
  - EPICONDYLITIS [None]
  - OSTEOARTHRITIS [None]
  - ADVERSE DRUG REACTION [None]
  - CERUMEN IMPACTION [None]
  - ASTHENIA [None]
  - URINARY TRACT INFECTION [None]
  - SEASONAL ALLERGY [None]
  - UTERINE CERVIX ATROPHY [None]
  - PANIC ATTACK [None]
  - DECREASED APPETITE [None]
